FAERS Safety Report 17521344 (Version 1)
Quarter: 2020Q1

REPORT INFORMATION
  Report Type: Spontaneous
  Country: US (occurrence: US)
  Receive Date: 20200310
  Receipt Date: 20200310
  Transmission Date: 20200409
  Serious: Yes (Life-Threatening)
  Sender: FDA-Public Use
  Company Number: None

PATIENT
  Age: 77 Year
  Sex: Male
  Weight: 93.8 kg

DRUGS (9)
  1. LEVAQUIN 250MG [Concomitant]
  2. OMEPRAZOLE 20MG [Concomitant]
     Active Substance: OMEPRAZOLE
  3. ASA 81MG [Concomitant]
     Active Substance: ASPIRIN
  4. LIPOSOMAL REGULAR (EXTERNAL) [Concomitant]
  5. ZOFRAN 8MG [Concomitant]
  6. TRIAMCINOLON 0.1% EXTERNAL [Concomitant]
  7. ATORVASTATIN 20MG [Concomitant]
     Active Substance: ATORVASTATIN
  8. TAZVERIK [Suspect]
     Active Substance: TAZEMETOSTAT HYDROBROMIDE
     Route: 048
  9. OXYBUTYNIN ER 15MG [Concomitant]

REACTIONS (1)
  - Disease progression [None]

NARRATIVE: CASE EVENT DATE: 20200310
